FAERS Safety Report 26059401 (Version 1)
Quarter: 2025Q4

REPORT INFORMATION
  Report Type: Spontaneous
  Country: CA (occurrence: CA)
  Receive Date: 20251118
  Receipt Date: 20251118
  Transmission Date: 20260117
  Serious: Yes (Hospitalization, Other)
  Sender: MERCK SHARP & DOHME LLC
  Company Number: CA-009507513-2350958

PATIENT
  Age: 77 Year
  Sex: Male
  Weight: 61 kg

DRUGS (1)
  1. ERTAPENEM [Suspect]
     Active Substance: ERTAPENEM
     Indication: Arthritis bacterial
     Route: 042

REACTIONS (2)
  - Acute kidney injury [Recovering/Resolving]
  - Confusional state [Recovering/Resolving]
